FAERS Safety Report 4378528-2 (Version None)
Quarter: 2004Q2

REPORT INFORMATION
  Report Type: 
  Country: None (occurrence: None)
  Receive Date: 20040616
  Receipt Date: 20040610
  Transmission Date: 20050107
  Serious: Yes (Hospitalization)
  Sender: FDA-Public Use
  Company Number: US-GLAXOSMITHKLINE-A0514152A

PATIENT
  Age: 46 Year
  Sex: Male

DRUGS (2)
  1. AUGMENTIN [Suspect]
     Indication: SINUSITIS
     Dosage: 1TAB PER DAY
     Route: 048
     Dates: start: 20040506, end: 20040525
  2. UNKNOWN HIV MED [Concomitant]

REACTIONS (3)
  - CHILLS [None]
  - HAEMOGLOBIN DECREASED [None]
  - PYREXIA [None]
